FAERS Safety Report 5972412-6 (Version None)
Quarter: 2008Q4

REPORT INFORMATION
  Report Type: 
  Country: None (occurrence: None)
  Receive Date: 20081201
  Receipt Date: 20081027
  Transmission Date: 20090506
  Serious: No
  Sender: FDA-Public Use
  Company Number: US-BAYER-200823190NA

PATIENT
  Age: 73 Year
  Sex: Male

DRUGS (9)
  1. LEVITRA [Suspect]
     Indication: ERECTILE DYSFUNCTION
     Dosage: TOTAL DAILY DOSE: 10 MG  UNIT DOSE: 10 MG
     Route: 048
     Dates: start: 20070401, end: 20070401
  2. LEVITRA [Suspect]
     Dosage: AS USED: 5 MG  UNIT DOSE: 10 MG
     Route: 048
     Dates: start: 20060301
  3. VERAPAMIL [Concomitant]
  4. FLECAINIDE ACETATE [Concomitant]
  5. LOVASTATIN [Concomitant]
  6. LISINOPRIL [Concomitant]
  7. HYDROCHLOROTHIAZIDE [Concomitant]
  8. TERAZOSIN HYDROCHLORIDE [Concomitant]
  9. K-TAB [Concomitant]

REACTIONS (4)
  - ERECTILE DYSFUNCTION [None]
  - PENILE ULCERATION [None]
  - PHIMOSIS [None]
  - SKIN IRRITATION [None]
